FAERS Safety Report 10020771 (Version 3)
Quarter: 2014Q2

REPORT INFORMATION
  Report Type: Spontaneous
  Country: JP (occurrence: JP)
  Receive Date: 20140319
  Receipt Date: 20140610
  Transmission Date: 20141212
  Serious: No
  Sender: FDA-Public Use
  Company Number: JP-ELI_LILLY_AND_COMPANY-JP201403003588

PATIENT
  Age: 55 Year
  Sex: Male
  Weight: 84.9 kg

DRUGS (4)
  1. CYMBALTA [Suspect]
     Indication: BIPOLAR I DISORDER
     Dosage: UNK
     Route: 048
  2. CYMBALTA [Suspect]
     Dosage: 20 MG, QD
     Route: 048
     Dates: start: 201207, end: 20120926
  3. CYMBALTA [Suspect]
     Dosage: 40 MG, QD
     Route: 048
     Dates: start: 20120927, end: 20140308
  4. REFLEX                             /01293201/ [Suspect]
     Indication: BIPOLAR I DISORDER
     Dosage: UNK
     Route: 048
     Dates: end: 20140308

REACTIONS (4)
  - Hepatic steatosis [Unknown]
  - Off label use [Recovered/Resolved]
  - Drug-induced liver injury [Recovering/Resolving]
  - Weight increased [Unknown]
